FAERS Safety Report 18050074 (Version 5)
Quarter: 2020Q4

REPORT INFORMATION
  Report Type: Report from Study
  Country: GB (occurrence: GB)
  Receive Date: 20200721
  Receipt Date: 20201106
  Transmission Date: 20210113
  Serious: Yes (Other)
  Sender: FDA-Public Use
  Company Number: GB-JNJFOC-20200719800

PATIENT
  Age: 77 Year
  Sex: Female

DRUGS (2)
  1. STELARA [Suspect]
     Active Substance: USTEKINUMAB
     Indication: PRODUCT USED FOR UNKNOWN INDICATION
     Route: 058
  2. STELARA [Suspect]
     Active Substance: USTEKINUMAB

REACTIONS (8)
  - Inappropriate schedule of product administration [Unknown]
  - Weight increased [Unknown]
  - Increased appetite [Unknown]
  - Product dose omission issue [Unknown]
  - Lower respiratory tract infection [Unknown]
  - Needle issue [Unknown]
  - Abdominal distension [Unknown]
  - Mouth ulceration [Unknown]

NARRATIVE: CASE EVENT DATE: 20201013
